FAERS Safety Report 21448709 (Version 1)
Quarter: 2022Q4

REPORT INFORMATION
  Report Type: Spontaneous
  Country: BR (occurrence: BR)
  Receive Date: 20221013
  Receipt Date: 20221013
  Transmission Date: 20230113
  Serious: Yes (Hospitalization, Other)
  Sender: FDA-Public Use
  Company Number: BR-CELLTRION INC.-2022BR016326

PATIENT

DRUGS (4)
  1. INFLIXIMAB [Suspect]
     Active Substance: INFLIXIMAB
     Indication: Psoriatic arthropathy
     Dosage: 1 AMPOULE EVERY 2 MONTHS,
     Route: 042
     Dates: start: 20220916
  2. METHOTREXATE [Concomitant]
     Active Substance: METHOTREXATE
     Indication: Arthritis
     Dosage: 6 PILLS PER THURSDAY (3 PILLS PER MORNING AND 3 PILLS PER NIGHT)
     Route: 048
     Dates: start: 2021
  3. PREDNISONE [Concomitant]
     Active Substance: PREDNISONE
     Indication: Arthritis
     Dosage: 2 PILLS PER DAY (STOP: ON 3 MONTHS)
     Route: 048
     Dates: start: 20220918
  4. AMLODIPINE BESYLATE\OLMESARTAN MEDOXOMIL [Concomitant]
     Active Substance: AMLODIPINE BESYLATE\OLMESARTAN MEDOXOMIL
     Indication: Hypertension
     Dosage: 40MG+10MG, 1 PILL PER DAY
     Route: 048
     Dates: start: 2021

REACTIONS (4)
  - Psoriatic arthropathy [Recovering/Resolving]
  - Mobility decreased [Recovering/Resolving]
  - Gait inability [Recovering/Resolving]
  - Pain [Recovering/Resolving]
